FAERS Safety Report 6527687-1 (Version None)
Quarter: 2010Q1

REPORT INFORMATION
  Report Type: 
  Country: None (occurrence: None)
  Receive Date: 20100105
  Receipt Date: 20091231
  Transmission Date: 20100710
  Serious: Yes (Other)
  Sender: FDA-Public Use
  Company Number: US-ASTRAZENECA-2009UW12909

PATIENT
  Age: 465 Month
  Sex: Female
  Weight: 81.6 kg

DRUGS (10)
  1. SEROQUEL [Suspect]
     Indication: BIPOLAR DISORDER
     Route: 048
     Dates: start: 20071101, end: 20080601
  2. SEROQUEL [Suspect]
     Indication: DEPRESSION
     Route: 048
     Dates: start: 20071101, end: 20080601
  3. SEROQUEL [Suspect]
     Route: 048
     Dates: start: 20071101, end: 20080601
  4. SEROQUEL [Suspect]
     Route: 048
     Dates: start: 20071101, end: 20080601
  5. GEODON [Concomitant]
     Dates: start: 20081001, end: 20090101
  6. LAMICTAL [Concomitant]
     Dates: start: 20080101
  7. ZOLOFT [Concomitant]
     Dates: start: 20070901, end: 20071001
  8. ZOLOFT [Concomitant]
     Dates: start: 20080301
  9. CLONAZEPAM [Concomitant]
     Dates: start: 20071001
  10. AMBIEN [Concomitant]
     Route: 048

REACTIONS (3)
  - ARTHRALGIA [None]
  - INTRAOCULAR PRESSURE INCREASED [None]
  - TYPE 2 DIABETES MELLITUS [None]
